FAERS Safety Report 7343369-0 (Version None)
Quarter: 2011Q1

REPORT INFORMATION
  Report Type: 
  Country: None (occurrence: None)
  Receive Date: 20110310
  Receipt Date: 20110104
  Transmission Date: 20110831
  Serious: Yes (Death)
  Sender: FDA-Public Use
  Company Number: PHHY2010NL86852

PATIENT
  Age: 38 Year
  Sex: Male

DRUGS (6)
  1. PULMOZYME [Concomitant]
  2. SALBUTAMOL [Concomitant]
     Dosage: UNK
  3. MUCOCLEAR [Concomitant]
     Dosage: UNK
  4. COLISTIN SULFATE [Concomitant]
  5. TOBI [Suspect]
  6. POLYMYXINS [Concomitant]

REACTIONS (1)
  - DEATH [None]
